FAERS Safety Report 5353771-4 (Version None)
Quarter: 2007Q2

REPORT INFORMATION
  Report Type: 
  Country: None (occurrence: None)
  Receive Date: 20070612
  Receipt Date: 20070605
  Transmission Date: 20071010
  Serious: Yes (Other)
  Sender: FDA-Public Use
  Company Number: CA-ROCHE-500835

PATIENT
  Age: 16 Year
  Sex: Female

DRUGS (3)
  1. CLONAZEPAM [Suspect]
     Indication: DRUG USE FOR UNKNOWN INDICATION
     Dosage: FREQUENCY REPORTED AS 20
     Route: 065
  2. SEROQUEL [Suspect]
     Indication: DRUG USE FOR UNKNOWN INDICATION
     Dosage: FREQUENCY REPORTED AS 40
     Route: 065
  3. ATIVAN [Suspect]
     Indication: DRUG USE FOR UNKNOWN INDICATION
     Dosage: FREQUENCY REPORTED AS 20
     Route: 065

REACTIONS (4)
  - COMA [None]
  - HYPOTENSION [None]
  - SOMNOLENCE [None]
  - TACHYCARDIA [None]
